FAERS Safety Report 9287296 (Version 1)
Quarter: 2013Q2

REPORT INFORMATION
  Report Type: Spontaneous
  Country: JP (occurrence: JP)
  Receive Date: 20130513
  Receipt Date: 20130513
  Transmission Date: 20140414
  Serious: Yes (Life-Threatening)
  Sender: FDA-Public Use
  Company Number: JP-ABBOTT-13X-087-1087868-00

PATIENT
  Age: 76 Year
  Sex: Female

DRUGS (5)
  1. CLARITHROMYCIN (LANSAP 800) [Suspect]
     Indication: HELICOBACTER INFECTION
     Dosage: 1 CARD (0.5 CARD, 2 IN 1 D)
     Route: 048
     Dates: start: 20121110, end: 20121115
  2. AMOXICILLIN (LANSAP 800) [Suspect]
     Indication: HELICOBACTER INFECTION
     Dosage: 1 CARD (0.5 CARD, 2 IN 1 D)
     Route: 048
     Dates: start: 20121110, end: 20121115
  3. LANSOPRAZOLE (LANSAP 800) [Suspect]
     Indication: HELICOBACTER INFECTION
     Dosage: 1 CARD (0.5 CARD,2 IN 1 D)
     Route: 048
     Dates: start: 20121110, end: 20121115
  4. AMLODIN [Concomitant]
     Indication: HYPERTENSION
     Route: 048
  5. LIPITOR [Concomitant]
     Indication: HYPERLIPIDAEMIA
     Route: 048

REACTIONS (4)
  - Respiratory tract oedema [Recovered/Resolved]
  - Face oedema [Recovered/Resolved]
  - Erythema [None]
  - Feeling hot [None]
